FAERS Safety Report 17436213 (Version 4)
Quarter: 2020Q2

REPORT INFORMATION
  Report Type: Report from Study
  Country: CA (occurrence: CA)
  Receive Date: 20200219
  Receipt Date: 20200527
  Transmission Date: 20200713
  Serious: Yes (Other)
  Sender: FDA-Public Use
  Company Number: CA-JNJFOC-20190516433

PATIENT
  Sex: Female
  Weight: 69 kg

DRUGS (1)
  1. REMICADE [Suspect]
     Active Substance: INFLIXIMAB
     Indication: CROHN^S DISEASE
     Dosage: 10 MG/KG
     Route: 042
     Dates: start: 20101021

REACTIONS (4)
  - Abdominal pain [Unknown]
  - Anal abscess [Not Recovered/Not Resolved]
  - Fistula [Not Recovered/Not Resolved]
  - Herpes zoster [Recovering/Resolving]
